FAERS Safety Report 5101446-9 (Version None)
Quarter: 2006Q3

REPORT INFORMATION
  Report Type: 
  Country: None (occurrence: None)
  Receive Date: 20060911
  Receipt Date: 20060629
  Transmission Date: 20061208
  Serious: Yes (Hospitalization)
  Sender: FDA-Public Use
  Company Number: JP-SANOFI-SYNTHELABO-A01200607266

PATIENT

DRUGS (9)
  1. VEGETAMIN [Concomitant]
     Indication: DRUG USE FOR UNKNOWN INDICATION
     Dosage: UNK
     Route: 048
  2. HALCION [Concomitant]
     Indication: DRUG USE FOR UNKNOWN INDICATION
     Dosage: 0.25 MG
     Route: 048
  3. BENZALIN [Concomitant]
     Indication: DRUG USE FOR UNKNOWN INDICATION
     Dosage: 10 MG
     Route: 048
  4. ZYPREXA [Concomitant]
     Indication: DRUG USE FOR UNKNOWN INDICATION
     Dosage: 10 MG
     Route: 065
  5. CERCINE [Concomitant]
     Indication: DRUG USE FOR UNKNOWN INDICATION
     Dosage: 15 MG
     Route: 048
  6. LIMAS [Concomitant]
     Indication: DRUG USE FOR UNKNOWN INDICATION
     Dosage: 600 MG
     Route: 048
  7. ROHYPNOL [Concomitant]
     Indication: DRUG USE FOR UNKNOWN INDICATION
     Dosage: 2 MG
     Route: 048
  8. MYSLEE [Suspect]
     Indication: INSOMNIA
     Dosage: UNK
     Route: 048
  9. MYSLEE [Suspect]
     Dosage: UNK
     Route: 048
     Dates: start: 20060627, end: 20060627

REACTIONS (3)
  - COMA [None]
  - MULTIPLE DRUG OVERDOSE [None]
  - NEUROLEPTIC MALIGNANT SYNDROME [None]
